FAERS Safety Report 7711781-3 (Version None)
Quarter: 2011Q3

REPORT INFORMATION
  Report Type: 
  Country: None (occurrence: None)
  Receive Date: 20110826
  Receipt Date: 20110812
  Transmission Date: 20111222
  Serious: No
  Sender: FDA-Public Use
  Company Number: US-B.I. PHARMACEUTICALS,INC./RIDGEFIELD-2011-BP-19870BP

PATIENT
  Sex: Male

DRUGS (3)
  1. FLOMAX [Suspect]
     Indication: PROSTATOMEGALY
     Dosage: 0.4 MG
     Route: 048
     Dates: start: 20110401, end: 20110601
  2. FLOMAX [Suspect]
     Dosage: 0.8 MG
     Route: 048
     Dates: start: 20110601, end: 20110809
  3. SULINDAC [Concomitant]
     Indication: PAIN IN EXTREMITY
     Dosage: 200 MG
     Route: 048

REACTIONS (3)
  - ERECTILE DYSFUNCTION [None]
  - DIZZINESS [None]
  - HEADACHE [None]
